FAERS Safety Report 11273830 (Version 1)
Quarter: 2015Q3

REPORT INFORMATION
  Report Type: Spontaneous
  Country: US (occurrence: US)
  Receive Date: 20150715
  Receipt Date: 20150715
  Transmission Date: 20151125
  Serious: Yes (Other)
  Sender: FDA-Public Use
  Company Number: US-ASTRAZENECA-2015SE66960

PATIENT
  Age: 64 Year
  Sex: Male
  Weight: 112.9 kg

DRUGS (17)
  1. EPIDURAL INJECTIONS [Concomitant]
     Indication: NECK PAIN
     Dosage: EVERY TWO WEEKS
     Route: 065
  2. FLUTICASONE [Concomitant]
     Active Substance: FLUTICASONE\FLUTICASONE PROPIONATE
  3. LEVAQUIN [Concomitant]
     Active Substance: LEVOFLOXACIN
  4. TAMSULOSIN [Concomitant]
     Active Substance: TAMSULOSIN
     Indication: PROSTATOMEGALY
     Route: 048
     Dates: start: 2014
  5. RHINOCORT AQUA [Suspect]
     Active Substance: BUDESONIDE
     Indication: NASAL POLYPS
     Route: 045
     Dates: start: 2009
  6. GARLIC. [Concomitant]
     Active Substance: GARLIC
  7. GLUCOSAMINE [Concomitant]
     Active Substance: GLUCOSAMINE
  8. MULTIPLE VITAMINS [Concomitant]
     Active Substance: VITAMINS
  9. FLAXSEED [Concomitant]
     Active Substance: FLAX SEED
  10. OMEGA 3 [Concomitant]
     Active Substance: OMEGA-3 FATTY ACIDS
  11. LEVAFLOXACIN [Concomitant]
  12. ZINC [Concomitant]
     Active Substance: ZINC\ZINC CHLORIDE
  13. CAVEDILOL [Concomitant]
     Active Substance: CARVEDILOL
     Route: 048
     Dates: start: 2014
  14. MELOXICAM. [Concomitant]
     Active Substance: MELOXICAM
     Indication: ARTHRITIS
     Route: 048
     Dates: start: 201506
  15. CHONDROITIN [Concomitant]
     Active Substance: CHONDROITIN
  16. CRESTOR [Suspect]
     Active Substance: ROSUVASTATIN CALCIUM
     Indication: BLOOD CHOLESTEROL ABNORMAL
     Route: 048
     Dates: start: 2014
  17. OSTEO-BI FLEX [Concomitant]
     Indication: ARTHRITIS
     Route: 048

REACTIONS (5)
  - Prostatomegaly [Unknown]
  - Blood cholesterol increased [Unknown]
  - Plantar fasciitis [Unknown]
  - Throat irritation [Unknown]
  - Dysphonia [Unknown]

NARRATIVE: CASE EVENT DATE: 2013
